FAERS Safety Report 5943228-1 (Version None)
Quarter: 2008Q4

REPORT INFORMATION
  Report Type: 
  Country: None (occurrence: None)
  Receive Date: 20081106
  Receipt Date: 20081031
  Transmission Date: 20090506
  Serious: Yes (Hospitalization)
  Sender: FDA-Public Use
  Company Number: B0545051A

PATIENT
  Age: 40 Year
  Sex: Male

DRUGS (4)
  1. ZIAGEN [Suspect]
     Indication: HIV INFECTION
     Route: 065
  2. TENOFOVIR [Concomitant]
     Indication: HIV INFECTION
     Route: 065
  3. LOPINAVIR AND RITONAVIR [Concomitant]
     Indication: HIV INFECTION
     Route: 065
  4. ANTICOAGULANTS (UNSPECIFIED) [Concomitant]
     Indication: PROPHYLAXIS
     Route: 065

REACTIONS (2)
  - MYOCARDIAL INFARCTION [None]
  - THERAPEUTIC RESPONSE UNEXPECTED [None]
